FAERS Safety Report 6326250-5 (Version None)
Quarter: 2009Q3

REPORT INFORMATION
  Report Type: 
  Country: None (occurrence: None)
  Receive Date: 20090824
  Receipt Date: 20090820
  Transmission Date: 20100115
  Serious: Yes (Death)
  Sender: FDA-Public Use
  Company Number: US-GILEAD-2009-0022977

PATIENT
  Sex: Female
  Weight: 46.308 kg

DRUGS (7)
  1. LETAIRIS [Suspect]
     Indication: PULMONARY ARTERIAL HYPERTENSION
     Route: 048
     Dates: start: 20090410
  2. PRAVASTATIN [Concomitant]
  3. RAMIPRIL [Concomitant]
  4. FUROSEMIDE [Concomitant]
  5. SYMBICORT [Concomitant]
  6. PREDNISONE TAB [Concomitant]
  7. POTASSIUM CL [Concomitant]

REACTIONS (2)
  - PNEUMONIA PNEUMOCOCCAL [None]
  - SEPSIS [None]
